FAERS Safety Report 13508547 (Version 1)
Quarter: 2017Q2

REPORT INFORMATION
  Report Type: Spontaneous
  Country: US (occurrence: US)
  Receive Date: 20170503
  Receipt Date: 20170503
  Transmission Date: 20170830
  Serious: Yes (Hospitalization)
  Sender: FDA-Public Use
  Company Number: US-SUN PHARMACEUTICAL INDUSTRIES LTD-2016US-111454

PATIENT
  Age: 47 Year
  Sex: Female

DRUGS (1)
  1. ASPIRIN. [Suspect]
     Active Substance: ASPIRIN
     Indication: PRODUCT USED FOR UNKNOWN INDICATION
     Dosage: UNK
     Route: 048

REACTIONS (6)
  - Respiratory alkalosis [Recovering/Resolving]
  - Metabolic alkalosis [Recovering/Resolving]
  - Suicide attempt [Unknown]
  - Metabolic acidosis [Recovering/Resolving]
  - Hyperchloraemia [Recovering/Resolving]
  - Toxicity to various agents [Recovering/Resolving]
